FAERS Safety Report 7108199-3 (Version None)
Quarter: 2010Q4

REPORT INFORMATION
  Report Type: 
  Country: None (occurrence: None)
  Receive Date: 20101117
  Receipt Date: 20101110
  Transmission Date: 20110411
  Serious: Yes (Hospitalization)
  Sender: FDA-Public Use
  Company Number: JP-JNJFOC-20100907452

PATIENT
  Sex: Male

DRUGS (8)
  1. FINIBAX [Suspect]
     Indication: FEBRILE NEUTROPENIA
     Route: 041
     Dates: start: 20100826, end: 20100903
  2. VANCOMYCIN HYDROCHLORIDE [Suspect]
     Indication: FEBRILE NEUTROPENIA
     Route: 041
     Dates: start: 20100824, end: 20100903
  3. LOXOPROFEN [Suspect]
     Indication: PYREXIA
     Route: 048
     Dates: start: 20100824, end: 20100904
  4. GASTER D [Suspect]
     Indication: GASTRITIS
     Route: 048
     Dates: start: 20100818, end: 20100906
  5. BLOPRESS [Suspect]
     Indication: HYPERTENSION
     Route: 048
     Dates: start: 20100413, end: 20100928
  6. MIYA BM [Concomitant]
     Indication: PROPHYLAXIS
     Route: 048
  7. NEUQUINON [Concomitant]
     Indication: CARDIAC FAILURE CONGESTIVE
     Route: 048
  8. URALYT-U [Concomitant]
     Indication: HYPERURICAEMIA
     Route: 048

REACTIONS (1)
  - INTERSTITIAL LUNG DISEASE [None]
